FAERS Safety Report 6370891-6 (Version None)
Quarter: 2009Q3

REPORT INFORMATION
  Report Type: 
  Country: None (occurrence: None)
  Receive Date: 20090923
  Receipt Date: 20070917
  Transmission Date: 20100115
  Serious: Yes (Other)
  Sender: FDA-Public Use
  Company Number: US-ASTRAZENECA-2006UW23636

PATIENT
  Age: 54 Year
  Sex: Female
  Weight: 59.9 kg

DRUGS (4)
  1. SEROQUEL [Suspect]
     Indication: BIPOLAR DISORDER
     Dosage: 25 MG - 400 MG
     Route: 048
     Dates: start: 20050531
  2. SEROQUEL [Suspect]
     Route: 048
  3. TYLENOL (CAPLET) [Concomitant]
     Dates: start: 20050531
  4. PROCHLORPERAZINE EDISYLATE [Concomitant]
     Dates: start: 20050531

REACTIONS (2)
  - PANCREATITIS [None]
  - PANCREATITIS ACUTE [None]
